FAERS Safety Report 17726963 (Version 1)
Quarter: 2020Q2

REPORT INFORMATION
  Report Type: Spontaneous
  Country: CA (occurrence: CA)
  Receive Date: 20200430
  Receipt Date: 20200430
  Transmission Date: 20200714
  Serious: Yes (Other)
  Sender: FDA-Public Use
  Company Number: CA-ACCORD-180075

PATIENT
  Age: 55 Year
  Sex: Female
  Weight: 48 kg

DRUGS (2)
  1. OXALIPLATIN. [Suspect]
     Active Substance: OXALIPLATIN
     Indication: PRODUCT USED FOR UNKNOWN INDICATION
     Dosage: INJECTION STRENGTH: 50 MG/ 10 ML AND 100 MG /20 ML
     Route: 041
  2. CAPECITABINE. [Concomitant]
     Active Substance: CAPECITABINE

REACTIONS (4)
  - Aphasia [Unknown]
  - Pharyngeal swelling [Unknown]
  - Swollen tongue [Unknown]
  - Dysphagia [Unknown]
